FAERS Safety Report 18681986 (Version 2)
Quarter: 2021Q4

REPORT INFORMATION
  Report Type: Report from Study
  Country: US (occurrence: US)
  Receive Date: 20201230
  Receipt Date: 20211015
  Transmission Date: 20220303
  Serious: Yes (Death, Other)
  Sender: FDA-Public Use
  Company Number: NVSC2020US335426

PATIENT
  Age: 62 Year
  Sex: Female

DRUGS (1)
  1. MEKINIST [Suspect]
     Active Substance: TRAMETINIB DIMETHYL SULFOXIDE
     Indication: Uterine cancer
     Dosage: 2 MG, QD
     Route: 065
     Dates: start: 20200411

REACTIONS (4)
  - Death [Fatal]
  - Hypersensitivity [Recovered/Resolved]
  - Acne [Recovered/Resolved]
  - Product use in unapproved indication [Unknown]

NARRATIVE: CASE EVENT DATE: 20200411
